FAERS Safety Report 18632697 (Version 1)
Quarter: 2020Q4

REPORT INFORMATION
  Report Type: Report from Study
  Country: None (occurrence: US)
  Receive Date: 20201218
  Receipt Date: 20201218
  Transmission Date: 20210114
  Serious: Yes (Other)
  Sender: FDA-Public Use
  Company Number: US-ABBVIE-20K-163-3693398-00

PATIENT
  Sex: Female

DRUGS (1)
  1. HUMIRA [Suspect]
     Active Substance: ADALIMUMAB
     Indication: RHEUMATOID ARTHRITIS
     Dosage: CITRATE FREE
     Route: 058

REACTIONS (15)
  - Rib fracture [Unknown]
  - Neck pain [Unknown]
  - Headache [Unknown]
  - Laryngitis [Unknown]
  - Back pain [Unknown]
  - Ligament rupture [Unknown]
  - Loose tooth [Unknown]
  - Arthralgia [Unknown]
  - Fall [Unknown]
  - Hypertension [Unknown]
  - Peripheral swelling [Unknown]
  - Dizziness [Unknown]
  - Hernia [Unknown]
  - Pain [Unknown]
  - Therapeutic response shortened [Unknown]

NARRATIVE: CASE EVENT DATE: 2020
